FAERS Safety Report 6884364-5 (Version None)
Quarter: 2010Q3

REPORT INFORMATION
  Report Type: 
  Country: None (occurrence: None)
  Receive Date: 20100729
  Receipt Date: 20070627
  Transmission Date: 20110219
  Serious: No
  Sender: FDA-Public Use
  Company Number: US-PFIZER INC-2007046935

PATIENT
  Sex: Female
  Weight: 70.454 kg

DRUGS (5)
  1. CELEBREX [Suspect]
     Indication: ARTHRITIS
  2. LISINOPRIL [Concomitant]
  3. MULTI-VITAMINS [Concomitant]
  4. VITAMIN D [Concomitant]
  5. CALCIUM [Concomitant]

REACTIONS (2)
  - DRUG INEFFECTIVE [None]
  - PAIN [None]
